FAERS Safety Report 6648520-3 (Version None)
Quarter: 2010Q1

REPORT INFORMATION
  Report Type: 
  Country: None (occurrence: None)
  Receive Date: 20100319
  Receipt Date: 20100305
  Transmission Date: 20100710
  Serious: Yes (Death, Life-Threatening, Hospitalization)
  Sender: FDA-Public Use
  Company Number: 2010EN000087

PATIENT
  Age: 60 Year
  Sex: Male
  Weight: 83.5 kg

DRUGS (4)
  1. ONCASPAR [Suspect]
     Indication: ACUTE LYMPHOCYTIC LEUKAEMIA
     Dosage: X1
     Dates: start: 20100212, end: 20100212
  2. DAUNORUBICIN HCL [Suspect]
     Indication: ACUTE LYMPHOCYTIC LEUKAEMIA
     Dosage: QD;IV
     Route: 042
     Dates: start: 20100208, end: 20100210
  3. VINCRISTINE [Suspect]
     Indication: ACUTE LYMPHOCYTIC LEUKAEMIA
     Dosage: QW;IV
     Route: 042
     Dates: start: 20100208, end: 20100201
  4. PREDNISONE TAB [Suspect]
     Indication: ACUTE LYMPHOCYTIC LEUKAEMIA
     Dosage: QD;PO
     Route: 048
     Dates: start: 20100208, end: 20100219

REACTIONS (2)
  - ENTEROCOCCAL SEPSIS [None]
  - URINARY TRACT INFECTION [None]
